FAERS Safety Report 9586513 (Version 3)
Quarter: 2014Q1

REPORT INFORMATION
  Report Type: Report from Study
  Country: US (occurrence: US)
  Receive Date: 20131003
  Receipt Date: 20140310
  Transmission Date: 20141002
  Serious: Yes (Congenital Anomaly)
  Sender: FDA-Public Use
  Company Number: US-B.I. PHARMACEUTICALS,INC./RIDGEFIELD-2013-BI-30319BI

PATIENT
  Sex: 0

DRUGS (8)
  1. APTIVUS [Suspect]
     Indication: EXPOSURE DURING PREGNANCY
     Dosage: 1000 MG
     Route: 064
  2. DARUNAVIR [Concomitant]
     Indication: EXPOSURE DURING PREGNANCY
     Dosage: 1200 MG
     Route: 064
  3. ETRAVIRINE [Concomitant]
     Indication: EXPOSURE DURING PREGNANCY
     Route: 064
  4. RALTEGRAVIR [Concomitant]
     Indication: EXPOSURE DURING PREGNANCY
     Dosage: 800 MG
     Route: 064
  5. RITONAVIR [Concomitant]
     Indication: EXPOSURE DURING PREGNANCY
     Dosage: 200 MG
     Route: 064
  6. RITONAVIR [Concomitant]
     Dosage: 800 MG
     Route: 065
  7. TENOFOVIR DISOPROXIL FUMARATE+EMTRICITABINE [Concomitant]
     Indication: EXPOSURE DURING PREGNANCY
     Dosage: DAILY DOSE 1 TAB/CAPS
     Route: 064
  8. ZIDOVUDINE [Concomitant]
     Indication: EXPOSURE DURING PREGNANCY
     Route: 064

REACTIONS (9)
  - Nervous system disorder [Unknown]
  - Lipodystrophy acquired [Unknown]
  - Genitalia external ambiguous [Unknown]
  - Exomphalos [Unknown]
  - Caudal regression syndrome [Unknown]
  - Meningomyelocele [Unknown]
  - Umbilical cord abnormality [Unknown]
  - Cloacal exstrophy [Unknown]
  - Bladder agenesis [Unknown]
